FAERS Safety Report 5656301-2 (Version None)
Quarter: 2008Q1

REPORT INFORMATION
  Report Type: 
  Country: None (occurrence: None)
  Receive Date: 20080309
  Receipt Date: 20070917
  Transmission Date: 20080703
  Serious: No
  Sender: FDA-Public Use
  Company Number: US-BAYER-200712993BCC

PATIENT
  Age: 77 Year
  Sex: Male
  Weight: 77 kg

DRUGS (7)
  1. ALEVE [Suspect]
     Indication: ARTHRALGIA
     Dosage: TOTAL DAILY DOSE: 440 MG  UNIT DOSE: 220 MG
     Route: 048
     Dates: start: 20070917
  2. NORVASC [Concomitant]
  3. ATENOLOL [Concomitant]
  4. SPIRONOLACTONE [Concomitant]
  5. FOSINOPRIL SODIUM [Concomitant]
  6. HYDROXYCHLOROQUINE SULFATE [Concomitant]
  7. METOCLOPRAMIDE [Concomitant]

REACTIONS (3)
  - ERYTHEMA [None]
  - HYPERSENSITIVITY [None]
  - PRURITUS [None]
